FAERS Safety Report 24965220 (Version 1)
Quarter: 2025Q1

REPORT INFORMATION
  Report Type: Report from Study
  Country: US (occurrence: US)
  Receive Date: 20250213
  Receipt Date: 20250213
  Transmission Date: 20250409
  Serious: Yes (Other)
  Sender: ROCHE
  Company Number: US-ROCHE-10000199376

PATIENT
  Age: 67 Year
  Sex: Male

DRUGS (10)
  1. OCREVUS [Suspect]
     Active Substance: OCRELIZUMAB
     Indication: Primary progressive multiple sclerosis
     Route: 065
  2. VITAMIN D3 [Concomitant]
     Active Substance: CHOLECALCIFEROL
     Dosage: 25 MCG
  3. ESCITALOPRAM OXALATE [Concomitant]
     Active Substance: ESCITALOPRAM OXALATE
  4. FLECAINIDE [Concomitant]
     Active Substance: FLECAINIDE
  5. METOPROLOL SUCCINATE [Concomitant]
     Active Substance: METOPROLOL SUCCINATE
  6. POTASSIUM CHLORIDE [Concomitant]
     Active Substance: POTASSIUM CHLORIDE
  7. PRASTERONE [Concomitant]
     Active Substance: PRASTERONE
  8. UROXATRAL [Concomitant]
     Active Substance: ALFUZOSIN HYDROCHLORIDE
  9. BACLOFEN [Concomitant]
     Active Substance: BACLOFEN
  10. KESIMPTA [Concomitant]
     Active Substance: OFATUMUMAB
     Route: 058

REACTIONS (11)
  - Malaise [Unknown]
  - Demyelination [Unknown]
  - Sensory loss [Unknown]
  - Hemiparesis [Unknown]
  - Fall [Unknown]
  - Fatigue [Unknown]
  - Headache [Unknown]
  - Asthenia [Unknown]
  - Joint instability [Unknown]
  - Osteoarthritis [Unknown]
  - Epicondylitis [Unknown]
